FAERS Safety Report 9113324 (Version 1)
Quarter: 2013Q1

REPORT INFORMATION
  Report Type: Spontaneous
  Country: US (occurrence: US)
  Receive Date: 20130131
  Receipt Date: 20130131
  Transmission Date: 20140127
  Serious: Yes (Other)
  Sender: FDA-Public Use
  Company Number: PHEH2013US001985

PATIENT
  Sex: Female

DRUGS (2)
  1. DIOVAN HCT [Suspect]
     Indication: BLOOD PRESSURE ABNORMAL
     Dosage: 1 DF, QD (VALS 160 MG / HYDR 12.5 MG)
     Route: 048
  2. DIAZEPAM [Concomitant]
     Indication: PANIC ATTACK
     Dosage: UNK (ONLY AS NEEDED)

REACTIONS (2)
  - Neoplasm malignant [Unknown]
  - Intracranial aneurysm [Unknown]
